FAERS Safety Report 9470625 (Version 1)
Quarter: 2013Q3

REPORT INFORMATION
  Report Type: Spontaneous
  Country: FR (occurrence: FR)
  Receive Date: 20130822
  Receipt Date: 20130822
  Transmission Date: 20140515
  Serious: Yes (Hospitalization, Other)
  Sender: FDA-Public Use
  Company Number: FR-PFIZER INC-2013239628

PATIENT
  Age: 72 Year
  Sex: Female

DRUGS (6)
  1. LYRICA [Suspect]
     Dosage: UNK
     Route: 048
     Dates: start: 2012, end: 201204
  2. LOVENOX [Suspect]
     Indication: ATRIAL FIBRILLATION
     Dosage: 0.5 ML, 2X/DAY
     Route: 058
     Dates: start: 20120330
  3. PREVISCAN [Suspect]
     Indication: ATRIAL FIBRILLATION
     Dosage: 20 MG, 1X/DAY
     Route: 048
     Dates: start: 20120330, end: 201204
  4. NOVOMIX [Concomitant]
  5. INSULATARD [Concomitant]
  6. ATACAND [Concomitant]

REACTIONS (6)
  - Hepatocellular injury [Unknown]
  - Cholestasis [Unknown]
  - Loss of consciousness [Unknown]
  - Hypoglycaemia [Recovered/Resolved]
  - Diabetes mellitus inadequate control [Unknown]
  - Hypertension [Unknown]
